FAERS Safety Report 8871617 (Version 1)
Quarter: 2012Q4

REPORT INFORMATION
  Report Type: 
  Country: FR (occurrence: FR)
  Receive Date: 20121026
  Receipt Date: 20121026
  Transmission Date: 20130627
  Serious: Yes (Other)
  Sender: FDA-Public Use
  Company Number: FR-US-EMD SERONO, INC.-7167814

PATIENT
  Age: 46 None
  Sex: Female

DRUGS (5)
  1. REBIF [Suspect]
     Indication: PRODUCT USED FOR UNKNOWN INDICATION
     Route: 058
     Dates: start: 201206
  2. AMOXICILLIN [Suspect]
     Indication: INFECTION
     Dates: start: 201208, end: 201209
  3. AMOXICILLIN [Suspect]
     Route: 048
     Dates: start: 20121015
  4. HORMONAL CONTRACEPTIVES (UNSPECIFIED) [Suspect]
     Indication: MENORRHAGIA
     Dates: start: 201208
  5. LEVOTHYROX [Concomitant]
     Indication: THYROIDECTOMY
     Dates: start: 2006

REACTIONS (7)
  - Gingival abscess [Not Recovered/Not Resolved]
  - Vaginal infection [Recovered/Resolved]
  - Lip swelling [Not Recovered/Not Resolved]
  - Rash pruritic [Not Recovered/Not Resolved]
  - Pruritus [Not Recovered/Not Resolved]
  - Injection site erythema [Unknown]
  - Injection site pain [Not Recovered/Not Resolved]
